FAERS Safety Report 7124985-8 (Version None)
Quarter: 2010Q4

REPORT INFORMATION
  Report Type: 
  Country: None (occurrence: None)
  Receive Date: 20101123
  Receipt Date: 20101123
  Transmission Date: 20110411
  Serious: No
  Sender: FDA-Public Use
  Company Number: None

PATIENT
  Age: 64 Year

DRUGS (1)
  1. TRETINOIN [Suspect]
     Indication: NEOPLASM MALIGNANT

REACTIONS (1)
  - EAR CONGESTION [None]
